FAERS Safety Report 11168885 (Version 2)
Quarter: 2015Q3

REPORT INFORMATION
  Report Type: Report from Study
  Country: JP (occurrence: JP)
  Receive Date: 20150605
  Receipt Date: 20150727
  Transmission Date: 20151125
  Serious: Yes (Hospitalization)
  Sender: FDA-Public Use
  Company Number: JP-EISAI MEDICAL RESEARCH-EC-2015-007421

PATIENT
  Age: 81 Year
  Sex: Female

DRUGS (15)
  1. LIVALO [Concomitant]
     Active Substance: PITAVASTATIN CALCIUM
  2. EDIROL [Concomitant]
     Active Substance: ELDECALCITOL
  3. DIOVAN [Concomitant]
     Active Substance: VALSARTAN
  4. CILNIDIPINE [Concomitant]
     Active Substance: CILNIDIPINE
  5. CALFINA [Concomitant]
     Active Substance: ALFACALCIDOL
  6. BASSAMIN 330MG [Concomitant]
  7. ARICEPT [Suspect]
     Active Substance: DONEPEZIL HYDROCHLORIDE
     Route: 048
     Dates: start: 20110301, end: 20130904
  8. CALCIUM L-ASPARTATE [Concomitant]
  9. LASIX [Concomitant]
     Active Substance: FUROSEMIDE
  10. ARICEPT [Suspect]
     Active Substance: DONEPEZIL HYDROCHLORIDE
     Indication: DEMENTIA ALZHEIMER^S TYPE
     Route: 048
     Dates: start: 20110213, end: 20110228
  11. ALSETIN [Concomitant]
  12. PARIET [Concomitant]
     Active Substance: RABEPRAZOLE SODIUM
  13. CO-DIO [Concomitant]
     Active Substance: HYDROCHLOROTHIAZIDE\VALSARTAN
  14. SPIRONOLACTONE. [Concomitant]
     Active Substance: SPIRONOLACTONE
  15. MEMARY [Concomitant]
     Active Substance: MEMANTINE HYDROCHLORIDE

REACTIONS (1)
  - Spinal compression fracture [Recovering/Resolving]

NARRATIVE: CASE EVENT DATE: 20130924
